FAERS Safety Report 5087565-4 (Version None)
Quarter: 2006Q3

REPORT INFORMATION
  Report Type: 
  Country: None (occurrence: None)
  Receive Date: 20060821
  Receipt Date: 20060807
  Transmission Date: 20061208
  Serious: Yes (Other)
  Sender: FDA-Public Use
  Company Number: 2006097634

PATIENT
  Age: 71 Year
  Sex: Female
  Weight: 44.9061 kg

DRUGS (4)
  1. CHANTIX [Suspect]
     Indication: SMOKING CESSATION THERAPY
     Dosage: 0.5 MG (0.5 MG, 1 IN 1 D)
     Dates: start: 20060701
  2. OXYGEN (OXYGEN) [Concomitant]
  3. ALBUTEROL [Concomitant]
  4. ATROVENT (IPARATROPIUM BROMIDE) [Concomitant]

REACTIONS (4)
  - ABNORMAL DREAMS [None]
  - BLOOD URINE PRESENT [None]
  - NAUSEA [None]
  - SOMNOLENCE [None]
